FAERS Safety Report 11072860 (Version 2)
Quarter: 2015Q2

REPORT INFORMATION
  Report Type: Spontaneous
  Country: US (occurrence: US)
  Receive Date: 20150428
  Receipt Date: 20150505
  Transmission Date: 20150821
  Serious: No
  Sender: FDA-Public Use
  Company Number: US-PFIZER INC-2015140167

PATIENT
  Age: 38 Year
  Sex: Male
  Weight: 77 kg

DRUGS (4)
  1. TRAZODONE [Concomitant]
     Active Substance: TRAZODONE HYDROCHLORIDE
     Indication: SLEEP DISORDER
     Dosage: 100 MG, 1X/DAY
     Route: 048
  2. SIMVASTATIN. [Concomitant]
     Active Substance: SIMVASTATIN
     Indication: BLOOD CHOLESTEROL INCREASED
     Dosage: 20 MG, 1X/DAY
     Route: 048
  3. VIAGRA [Suspect]
     Active Substance: SILDENAFIL CITRATE
     Dosage: A HALF OF A 100 MG PILL OF VIAGRA
     Route: 048
     Dates: end: 20150402
  4. VIAGRA [Suspect]
     Active Substance: SILDENAFIL CITRATE
     Indication: ERECTILE DYSFUNCTION
     Dosage: A QUARTER OF THE 100 MG VIAGRA PILL
     Route: 048
     Dates: start: 20150325

REACTIONS (4)
  - Drug ineffective [Not Recovered/Not Resolved]
  - Pollakiuria [Not Recovered/Not Resolved]
  - Intentional product misuse [Unknown]
  - Dysuria [Not Recovered/Not Resolved]

NARRATIVE: CASE EVENT DATE: 20150403
